FAERS Safety Report 19930575 (Version 1)
Quarter: 2021Q4

REPORT INFORMATION
  Report Type: Spontaneous
  Country: TR (occurrence: TR)
  Receive Date: 20211007
  Receipt Date: 20211007
  Transmission Date: 20220303
  Serious: Yes (Hospitalization, Other)
  Sender: FDA-Public Use
  Company Number: TR-LUPIN PHARMACEUTICALS INC.-2021-18841

PATIENT
  Age: 21 Year
  Sex: Female

DRUGS (4)
  1. TRIAMCINOLONE [Suspect]
     Active Substance: TRIAMCINOLONE
     Indication: Drug therapy
     Dosage: UNK
     Route: 031
  2. PREDNISOLONE [Suspect]
     Active Substance: PREDNISOLONE
     Indication: Drug therapy
     Dosage: UNK
     Route: 048
  3. AMPHOTERICIN B [Suspect]
     Active Substance: AMPHOTERICIN B
     Indication: Candida endophthalmitis
     Dosage: 10 MICROGRAM, 0.1CC AMPHOTERICIN-B 10 MICROG WAS ADMINISTERED AT THE END OF SURGERY
  4. AMPHOTERICIN B [Suspect]
     Active Substance: AMPHOTERICIN B
     Dosage: 5 MICROGRAM, 6 WEEKLY AND 2 BI-WEEKLY INTRAVITREAL 0.05CC AMPHOTERICIN-B 5 MICROG INJECTIONS; CONTIN

REACTIONS (4)
  - Candida endophthalmitis [Recovered/Resolved]
  - Condition aggravated [Recovered/Resolved]
  - Maternal exposure during pregnancy [Unknown]
  - Normal newborn [Unknown]
